FAERS Safety Report 5169391-0 (Version None)
Quarter: 2006Q4

REPORT INFORMATION
  Report Type: 
  Country: None (occurrence: None)
  Receive Date: 20061201
  Receipt Date: 20061117
  Transmission Date: 20070319
  Serious: Yes (Hospitalization)
  Sender: FDA-Public Use
  Company Number: RENA-11646

PATIENT
  Age: 55 Year
  Sex: Male
  Weight: 82.3279 kg

DRUGS (16)
  1. RENAGEL [Suspect]
     Indication: HYPERPHOSPHATAEMIA
     Dosage: 15 G DAILY PO
     Route: 048
     Dates: start: 20020514, end: 20060607
  2. ABACAVIR SULFATE [Concomitant]
  3. AMOXICILLIN [Concomitant]
  4. CINACALCET HCI [Concomitant]
  5. CLONIDINE HCL [Concomitant]
  6. CLOTRIMAZOLE [Concomitant]
  7. EFAVIRENZ [Concomitant]
  8. HUMULIN R [Concomitant]
  9. LOPERAMIDE HCL [Concomitant]
  10. LORAZEPAM [Concomitant]
  11. METOPROLOL TARTRATE [Concomitant]
  12. MICONAZOLE NITRATE [Concomitant]
  13. NUTRIRENAL LIQUID VANILLA [Concomitant]
  14. OMEPRAZOLE [Concomitant]
  15. ROSIGLITAZONE MALEATE [Concomitant]
  16. TENOFOVIR DISOPROXIL FUMARATE [Concomitant]

REACTIONS (3)
  - BLOOD PHOSPHORUS DECREASED [None]
  - BLOOD PHOSPHORUS INCREASED [None]
  - MENTAL STATUS CHANGES [None]
